FAERS Safety Report 11151233 (Version 1)
Quarter: 2015Q2

REPORT INFORMATION
  Report Type: Spontaneous
  Country: IT (occurrence: None)
  Receive Date: 20150528
  Receipt Date: 20150528
  Transmission Date: 20150821
  Serious: Yes (Congenital Anomaly)
  Sender: FDA-Public Use
  Company Number: 8026226

PATIENT
  Age: 0 Day
  Sex: Female

DRUGS (2)
  1. DEPAKENE [Suspect]
     Active Substance: VALPROIC ACID
     Indication: EPILEPSY
     Dosage: PRODUCT TAKEN BY MOTHER
  2. EUTIROX (LEVOTHYROXINE SODIUM) (75 MICROGRAM) (LEVOTHYROXINE SODIUM) [Suspect]
     Active Substance: LEVOTHYROXINE SODIUM
     Indication: HYPOTHYROIDISM
     Dosage: PRODUCT TAKEN BY MOTHER

REACTIONS (5)
  - Atrial septal defect [None]
  - Cleft palate [None]
  - Maternal drugs affecting foetus [None]
  - Laryngomalacia [None]
  - Joint dislocation [None]

NARRATIVE: CASE EVENT DATE: 20140821
